FAERS Safety Report 10082183 (Version 6)
Quarter: 2015Q3

REPORT INFORMATION
  Report Type: Report from Study
  Country: US (occurrence: US)
  Receive Date: 20140416
  Receipt Date: 20150817
  Transmission Date: 20151125
  Serious: Yes (Life-Threatening, Hospitalization)
  Sender: FDA-Public Use
  Company Number: US-SA-2014SA032096

PATIENT
  Age: 49 Year
  Sex: Male
  Weight: 111.58 kg

DRUGS (29)
  1. ALEMTUZUMAB [Suspect]
     Active Substance: ALEMTUZUMAB
     Indication: MULTIPLE SCLEROSIS
     Route: 042
     Dates: start: 20120213, end: 20120215
  2. TYLENOL [Concomitant]
     Active Substance: ACETAMINOPHEN
     Route: 048
     Dates: start: 20140311
  3. TYLENOL [Concomitant]
     Active Substance: ACETAMINOPHEN
     Route: 054
     Dates: start: 20140311
  4. LIDOCAINE. [Concomitant]
     Active Substance: LIDOCAINE
     Dosage: DOSE:10 MILLIGRAM(S)/MILLILITRE
  5. NORMAL SALINE [Concomitant]
     Active Substance: SODIUM CHLORIDE
     Route: 042
     Dates: start: 20140311
  6. ERTAPENEM [Concomitant]
     Active Substance: ERTAPENEM
  7. PROMETHAZINE [Concomitant]
     Active Substance: PROMETHAZINE\PROMETHAZINE HYDROCHLORIDE
     Dosage: DOSE:25 MILLIGRAM(S)/MILLILITRE
     Route: 042
  8. INSULIN [Concomitant]
     Active Substance: INSULIN NOS
  9. ALBUTEROL. [Concomitant]
     Active Substance: ALBUTEROL
     Dosage: 2.5-0.5 MG/3 ML
  10. METHYLPREDNISOLONE. [Concomitant]
     Active Substance: METHYLPREDNISOLONE
     Route: 042
     Dates: start: 20110214, end: 20110216
  11. VANCOMYCIN [Concomitant]
     Active Substance: VANCOMYCIN
     Route: 042
     Dates: start: 20140312
  12. PANTOPRAZOLE [Concomitant]
     Active Substance: PANTOPRAZOLE SODIUM
     Route: 042
  13. HEPARIN [Concomitant]
     Active Substance: HEPARIN SODIUM
     Route: 058
  14. ANAESTHETICS, GENERAL [Concomitant]
     Active Substance: UNSPECIFIED INGREDIENT
     Dates: start: 20140312, end: 20140312
  15. ATROVENT [Concomitant]
     Active Substance: IPRATROPIUM BROMIDE
     Dosage: DOSE: 2.5 ML/2.5 ML?NEBULIZER
     Dates: start: 20140316
  16. ALEMTUZUMAB [Suspect]
     Active Substance: ALEMTUZUMAB
     Indication: MULTIPLE SCLEROSIS
     Route: 042
     Dates: start: 20110214, end: 20110218
  17. RESTORIL [Concomitant]
     Active Substance: TEMAZEPAM
     Route: 048
     Dates: start: 20140311
  18. ZOFRAN [Concomitant]
     Active Substance: ONDANSETRON HYDROCHLORIDE
     Dosage: IV PUSH, FOR NAUSEA AND VOMITTING DOSE:2 MILLIGRAM(S)/MILLILITRE
     Route: 042
     Dates: start: 20140310
  19. NALOXONE [Concomitant]
     Active Substance: NALOXONE
     Dosage: Q 3 MIN
  20. ONDANSETRON [Concomitant]
     Active Substance: ONDANSETRON
     Route: 042
  21. DILAUDID [Concomitant]
     Active Substance: HYDROMORPHONE HYDROCHLORIDE
     Indication: PAIN
     Dosage: SLOW IV PUSH DOSE:1 MILLIGRAM(S)/MILLILITRE
     Route: 042
     Dates: start: 20140312
  22. REBIF [Concomitant]
     Active Substance: INTERFERON BETA-1A
     Indication: MULTIPLE SCLEROSIS
  23. ENOXAPARIN [Concomitant]
     Active Substance: ENOXAPARIN
     Route: 058
     Dates: start: 20140310
  24. METHYLPREDNISOLONE. [Concomitant]
     Active Substance: METHYLPREDNISOLONE
     Route: 042
     Dates: start: 20120213, end: 20120215
  25. VALIUM [Concomitant]
     Active Substance: DIAZEPAM
  26. HYDROCHLOROTHIAZIDE/LISINOPRIL [Concomitant]
     Dosage: DOSE: 12.5-20 MG
  27. NARCAN [Concomitant]
     Active Substance: NALOXONE HYDROCHLORIDE
     Indication: RESPIRATORY DISTRESS
     Dosage: DOSE:0.4 MILLIGRAM(S)/MILLILITRE
     Route: 042
     Dates: start: 20140312
  28. MORPHINE [Concomitant]
     Active Substance: MORPHINE
  29. DIPHENHYDRAMINE. [Concomitant]
     Active Substance: DIPHENHYDRAMINE
     Route: 042
     Dates: start: 20140311

REACTIONS (8)
  - Post procedural fistula [Recovered/Resolved]
  - Colitis ischaemic [Recovered/Resolved with Sequelae]
  - Cardiac arrest [Recovered/Resolved]
  - Sepsis [Recovered/Resolved]
  - Castleman^s disease [Not Recovered/Not Resolved]
  - Renal tubular necrosis [Recovered/Resolved]
  - Pneumonia aspiration [Recovered/Resolved]
  - Dehydration [Not Recovered/Not Resolved]

NARRATIVE: CASE EVENT DATE: 20140310
